FAERS Safety Report 18162993 (Version 1)
Quarter: 2020Q3

REPORT INFORMATION
  Report Type: Spontaneous
  Country: US (occurrence: US)
  Receive Date: 20200818
  Receipt Date: 20200818
  Transmission Date: 20201103
  Serious: No
  Sender: FDA-Public Use
  Company Number: None

PATIENT
  Age: 60 Year
  Sex: Female

DRUGS (1)
  1. REPATHA [Suspect]
     Active Substance: EVOLOCUMAB
     Dosage: OTHER FREQUENCY:OTHER;?
     Route: 058
     Dates: start: 201912, end: 202008

REACTIONS (3)
  - Myalgia [None]
  - Arthralgia [None]
  - Asthenia [None]

NARRATIVE: CASE EVENT DATE: 20200708
